FAERS Safety Report 6256538-8 (Version None)
Quarter: 2009Q2

REPORT INFORMATION
  Report Type: 
  Country: None (occurrence: None)
  Receive Date: 20090630
  Receipt Date: 20090630
  Transmission Date: 20091009
  Serious: Yes (Other)
  Sender: FDA-Public Use
  Company Number: None

PATIENT
  Age: 50 Year
  Sex: Male
  Weight: 68.0396 kg

DRUGS (1)
  1. PROPOFOL [Suspect]
     Indication: SEDATIVE THERAPY
     Dosage: 250MG TOTAL FOR CASE IV 0850 AM TO 0904 AM
     Route: 042

REACTIONS (3)
  - BODY TEMPERATURE INCREASED [None]
  - MUSCULOSKELETAL PAIN [None]
  - NECK PAIN [None]
